FAERS Safety Report 4432516-6 (Version None)
Quarter: 2004Q3

REPORT INFORMATION
  Report Type: 
  Country: None (occurrence: None)
  Receive Date: 20040820
  Receipt Date: 20040813
  Transmission Date: 20050211
  Serious: Yes (Hospitalization)
  Sender: FDA-Public Use
  Company Number: TPA2004A00800

PATIENT
  Age: 55 Year
  Sex: Male
  Weight: 100.6985 kg

DRUGS (7)
  1. ACTOS [Suspect]
     Indication: DIABETES MELLITUS NON-INSULIN-DEPENDENT
     Dosage: 45 MG, 1 IN 1 D, PER ORAL
     Route: 048
     Dates: start: 20040101, end: 20040517
  2. VIAGRA [Concomitant]
  3. PRAVACHOL [Concomitant]
  4. BENICAR [Concomitant]
  5. LASIX [Concomitant]
  6. ALBUTEROL [Concomitant]
  7. GLUCOPHAGE [Concomitant]

REACTIONS (19)
  - ABDOMINAL DISTENSION [None]
  - ABDOMINAL PAIN [None]
  - ANOREXIA [None]
  - ARTHRITIS [None]
  - BLOOD URINE [None]
  - CARDIOMEGALY [None]
  - DYSPNOEA [None]
  - FATIGUE [None]
  - FLUID RETENTION [None]
  - GENERALISED OEDEMA [None]
  - GLUCOSE URINE [None]
  - INCREASED UPPER AIRWAY SECRETION [None]
  - MALAISE [None]
  - MUSCULOSKELETAL STIFFNESS [None]
  - RHINITIS ALLERGIC [None]
  - SKIN ULCER [None]
  - SLEEP APNOEA SYNDROME [None]
  - VOMITING [None]
  - WEIGHT INCREASED [None]
